FAERS Safety Report 13033251 (Version 2)
Quarter: 2017Q1

REPORT INFORMATION
  Report Type: Spontaneous
  Country: GB (occurrence: GB)
  Receive Date: 20161216
  Receipt Date: 20170106
  Transmission Date: 20170428
  Serious: Yes (Hospitalization)
  Sender: FDA-Public Use
  Company Number: GB-ASTRAZENECA-2016SF31571

PATIENT
  Age: 18940 Day
  Sex: Female

DRUGS (7)
  1. PACLITAXEL. [Suspect]
     Active Substance: PACLITAXEL
     Indication: BREAST CANCER
     Route: 042
     Dates: start: 20161125
  2. ACYCLOVIR. [Suspect]
     Active Substance: ACYCLOVIR
     Indication: GENITAL HERPES
     Route: 042
     Dates: start: 20161202
  3. ACYCLOVIR. [Suspect]
     Active Substance: ACYCLOVIR
     Indication: GENITAL HERPES
     Route: 042
     Dates: start: 20161130
  4. OLAPARIB [Suspect]
     Active Substance: OLAPARIB
     Indication: BREAST CANCER
     Route: 048
     Dates: start: 20161123
  5. ORAL CIPROFLOXACIN [Suspect]
     Active Substance: CIPROFLOXACIN
     Route: 048
     Dates: start: 20161209
  6. FLUCONAZOLE. [Suspect]
     Active Substance: FLUCONAZOLE
     Route: 048
     Dates: start: 20161209
  7. CARBOPLATIN. [Suspect]
     Active Substance: CARBOPLATIN
     Indication: BREAST CANCER
     Route: 042
     Dates: start: 20161125, end: 20161202

REACTIONS (1)
  - Urinary retention [Not Recovered/Not Resolved]

NARRATIVE: CASE EVENT DATE: 20161209
